FAERS Safety Report 9178430 (Version 4)
Quarter: 2014Q2

REPORT INFORMATION
  Report Type: Report from Study
  Country: JP (occurrence: JP)
  Receive Date: 20121029
  Receipt Date: 20140605
  Transmission Date: 20141212
  Serious: Yes (Hospitalization)
  Sender: FDA-Public Use
  Company Number: JP-VERTEX PHARMACEUTICAL INC.-2012-023579

PATIENT
  Age: 62 Year
  Sex: Female

DRUGS (17)
  1. VX-950 (TELAPREVIR) [Suspect]
     Indication: CHRONIC HEPATITIS C
     Dosage: 1500 MG, QD
     Route: 048
     Dates: start: 20120709, end: 20121001
  2. RIBAVIRIN [Suspect]
     Indication: CHRONIC HEPATITIS C
     Dosage: 400 MG, QD
     Route: 048
     Dates: start: 20120709, end: 20120724
  3. RIBAVIRIN [Suspect]
     Dosage: 200 MG, QD
     Route: 048
     Dates: start: 20120725, end: 20120826
  4. RIBAVIRIN [Suspect]
     Dosage: 200 MG, QOD
     Route: 048
     Dates: start: 20120827, end: 20120920
  5. RIBAVIRIN [Suspect]
     Dosage: 200 MG, QD
     Route: 048
     Dates: start: 20120921, end: 20120923
  6. RIBAVIRIN [Suspect]
     Dosage: 200 MG, QOD
     Route: 048
     Dates: start: 20120924, end: 20121016
  7. RIBAVIRIN [Suspect]
     Dosage: 200 MG, QD
     Route: 048
     Dates: start: 20121017, end: 20121211
  8. RIBAVIRIN [Suspect]
     Dosage: 300 MG, QOD
     Route: 048
     Dates: start: 20121212, end: 20121218
  9. RIBAVIRIN [Suspect]
     Dosage: 400 MG, QD
     Route: 048
     Dates: start: 20121219
  10. PEGINTERFERON ALFA-2B [Suspect]
     Indication: CHRONIC HEPATITIS C
     Dosage: 1.5 ?G/KG, QW
     Route: 058
     Dates: start: 20120709, end: 20120716
  11. PEGINTERFERON ALFA-2B [Suspect]
     Dosage: 0.8 ?G/KG, QW
     Route: 058
     Dates: start: 20120717, end: 20120826
  12. PEGINTERFERON ALFA-2B [Suspect]
     Dosage: 0.6 ?G/KG, QW
     Route: 058
     Dates: start: 20120827, end: 20121023
  13. PEGINTERFERON ALFA-2B [Suspect]
     Dosage: 40 ?G, QW
     Route: 058
     Dates: start: 20121024, end: 20121113
  14. PEGINTERFERON ALFA-2B [Suspect]
     Dosage: 20 ?G, QW
     Route: 058
     Dates: start: 20121114, end: 20121120
  15. PEGINTERFERON ALFA-2B [Suspect]
     Dosage: 30 ?G, QW
     Route: 058
     Dates: start: 20121121
  16. BONALON [Concomitant]
     Indication: PRODUCT USED FOR UNKNOWN INDICATION
     Dosage: 35 MG, QW
     Route: 048
     Dates: start: 20120923
  17. MAGLAX [Concomitant]
     Dosage: 990 MG, QD
     Route: 048
     Dates: end: 20120909

REACTIONS (1)
  - Erythema [Recovering/Resolving]
